FAERS Safety Report 4748926-3 (Version None)
Quarter: 2005Q3

REPORT INFORMATION
  Report Type: 
  Country: None (occurrence: None)
  Receive Date: 20050819
  Receipt Date: 20050811
  Transmission Date: 20060218
  Serious: Yes (Hospitalization)
  Sender: FDA-Public Use
  Company Number: FR-JNJFOC-20050802990

PATIENT
  Age: 51 Year
  Sex: Female
  Weight: 64 kg

DRUGS (7)
  1. REMICADE [Suspect]
     Dosage: 11TH INFUSION.
     Route: 042
  2. REMICADE [Suspect]
     Dosage: 10TH INFUSION.
     Route: 042
  3. REMICADE [Suspect]
     Dosage: 1ST INFUSION.
     Route: 042
  4. ALTIM [Suspect]
     Dosage: 2 DF
     Route: 065
  5. CORTANCYL [Suspect]
     Route: 048
  6. CELEBREX [Suspect]
     Route: 042
  7. NOVATREX [Suspect]
     Dosage: 6 TABLETS
     Route: 048

REACTIONS (1)
  - DERMATITIS [None]
